FAERS Safety Report 5610512-0 (Version None)
Quarter: 2008Q1

REPORT INFORMATION
  Report Type: 
  Country: None (occurrence: None)
  Receive Date: 20080201
  Receipt Date: 20080123
  Transmission Date: 20080703
  Serious: Yes (Hospitalization)
  Sender: FDA-Public Use
  Company Number: US-JNJFOC-20080106088

PATIENT
  Sex: Female
  Weight: 116.58 kg

DRUGS (7)
  1. INFLIXIMAB [Suspect]
     Route: 042
  2. INFLIXIMAB [Suspect]
     Indication: CROHN'S DISEASE
     Route: 042
  3. 5-ASA [Concomitant]
     Route: 048
  4. PREDNISONE TAB [Concomitant]
  5. BACTRIM [Concomitant]
  6. FLAGYL [Concomitant]
  7. CIPRO [Concomitant]

REACTIONS (2)
  - DYSPNOEA [None]
  - PITTING OEDEMA [None]
